FAERS Safety Report 9732960 (Version 3)
Quarter: 2014Q1

REPORT INFORMATION
  Report Type: Spontaneous
  Country: PK (occurrence: PK)
  Receive Date: 20131205
  Receipt Date: 20140131
  Transmission Date: 20141002
  Serious: Yes (Disabling, Other)
  Sender: FDA-Public Use
  Company Number: ALCN2013PK005959

PATIENT
  Age: 63 Year
  Sex: Male
  Weight: 65 kg

DRUGS (2)
  1. NEVANAC [Suspect]
     Indication: VISION BLURRED
     Dosage: 1 GTT, TID
     Route: 047
     Dates: start: 20131010, end: 20131121
  2. LUTEVIT [Concomitant]
     Indication: ROUTINE HEALTH MAINTENANCE
     Dosage: 1 TAB, QD
     Route: 048
     Dates: start: 20131010, end: 20131121

REACTIONS (4)
  - Eye haemorrhage [Recovering/Resolving]
  - Visual impairment [Recovering/Resolving]
  - Ocular hyperaemia [Recovering/Resolving]
  - Eye injury [Unknown]
